FAERS Safety Report 5876707-6 (Version None)
Quarter: 2008Q3

REPORT INFORMATION
  Report Type: 
  Country: None (occurrence: None)
  Receive Date: 20080910
  Receipt Date: 20080905
  Transmission Date: 20090109
  Serious: Yes (Congenital Anomaly, Other)
  Sender: FDA-Public Use
  Company Number: GB-TEVA-175127ISR

PATIENT
  Sex: Female

DRUGS (5)
  1. CARBAMAZEPINE [Suspect]
     Route: 064
  2. LAMOTRIGINE [Suspect]
     Route: 064
  3. ACETAZOLAMIDE [Suspect]
     Route: 064
  4. ACETYLSALICYLIC ACID SRT [Suspect]
  5. HEPARIN [Suspect]

REACTIONS (6)
  - CARDIAC ANEURYSM [None]
  - CARDIAC TAMPONADE [None]
  - DRUG EXPOSURE DURING PREGNANCY [None]
  - INTRA-UTERINE DEATH [None]
  - PERICARDIAL HAEMORRHAGE [None]
  - STILLBIRTH [None]
